FAERS Safety Report 6147486-2 (Version None)
Quarter: 2009Q2

REPORT INFORMATION
  Report Type: 
  Country: None (occurrence: None)
  Receive Date: 20090408
  Receipt Date: 20090331
  Transmission Date: 20091009
  Serious: Yes (Hospitalization)
  Sender: FDA-Public Use
  Company Number: US-BIOGENIDEC-2009BI006884

PATIENT
  Age: 63 Year
  Sex: Female

DRUGS (1)
  1. AVONEX [Suspect]
     Indication: MULTIPLE SCLEROSIS
     Route: 030
     Dates: start: 20040301

REACTIONS (5)
  - BLADDER DISORDER [None]
  - FUNGAL INFECTION [None]
  - SEPSIS [None]
  - STAPHYLOCOCCAL SKIN INFECTION [None]
  - URINARY TRACT INFECTION [None]
